FAERS Safety Report 7822336-4 (Version None)
Quarter: 2011Q4

REPORT INFORMATION
  Report Type: 
  Country: None (occurrence: None)
  Receive Date: 20111018
  Receipt Date: 20100914
  Transmission Date: 20120403
  Serious: No
  Sender: FDA-Public Use
  Company Number: US-ASTRAZENECA-2010SE43218

PATIENT
  Age: 34 Year
  Sex: Female
  Weight: 46.3 kg

DRUGS (2)
  1. PROAIR HFA [Concomitant]
  2. SYMBICORT [Suspect]
     Indication: ASTHMA
     Route: 055
     Dates: start: 20100201

REACTIONS (3)
  - DYSPNOEA [None]
  - WHEEZING [None]
  - DRUG DOSE OMISSION [None]
